FAERS Safety Report 7963178-9 (Version None)
Quarter: 2011Q4

REPORT INFORMATION
  Report Type: 
  Country: None (occurrence: None)
  Receive Date: 20111208
  Receipt Date: 20111206
  Transmission Date: 20120403
  Serious: Yes (Other)
  Sender: FDA-Public Use
  Company Number: US-ACCORD-011554

PATIENT
  Age: 58 Year
  Sex: Female
  Weight: 102 kg

DRUGS (4)
  1. METFORMIN HCL [Concomitant]
  2. CYMBALTA [Concomitant]
  3. LOSARTAN/HYDROCHLOORTHIAZIDE [Concomitant]
  4. SIMVASTATIN [Suspect]
     Route: 048
     Dates: start: 20111114, end: 20111116

REACTIONS (1)
  - BLOOD URINE PRESENT [None]
